FAERS Safety Report 9517462 (Version 1)
Quarter: 2013Q3

REPORT INFORMATION
  Report Type: Spontaneous
  Country: FR (occurrence: FR)
  Receive Date: 20130911
  Receipt Date: 20130911
  Transmission Date: 20140515
  Serious: Yes (Hospitalization)
  Sender: FDA-Public Use
  Company Number: FR-MERCK-1309FRA001612

PATIENT
  Age: 33 Year
  Sex: Female

DRUGS (4)
  1. AERIUS [Suspect]
     Dosage: 1 DF, QD
     Route: 048
  2. POLYPROPYLENE [Suspect]
     Indication: BASEDOW^S DISEASE
     Dosage: 6 DF, QD
     Route: 048
     Dates: start: 20130626, end: 20130703
  3. AVLOCARDYL [Suspect]
     Indication: BASEDOW^S DISEASE
     Dosage: 40 MG, QD
     Route: 048
  4. NEO-MERCAZOLE [Suspect]
     Indication: BASEDOW^S DISEASE
     Dosage: UNK
     Route: 048
     Dates: start: 20130605, end: 201306

REACTIONS (3)
  - Hepatitis [Recovered/Resolved]
  - Hyperthermia [Recovered/Resolved]
  - Diarrhoea [Unknown]
